FAERS Safety Report 6017114-5 (Version None)
Quarter: 2008Q4

REPORT INFORMATION
  Report Type: 
  Country: None (occurrence: None)
  Receive Date: 20081219
  Receipt Date: 20081215
  Transmission Date: 20090506
  Serious: Yes (Death)
  Sender: FDA-Public Use
  Company Number: TPA2008A01984

PATIENT
  Age: 54 Year
  Sex: Male

DRUGS (1)
  1. ACTOS [Suspect]
     Indication: DRUG USE FOR UNKNOWN INDICATION
     Dosage: 15 MG, 1 IN 1 D, PER ORAL
     Route: 048

REACTIONS (1)
  - DEATH [None]
